FAERS Safety Report 4945801-6 (Version None)
Quarter: 2006Q1

REPORT INFORMATION
  Report Type: 
  Country: None (occurrence: None)
  Receive Date: 20060316
  Receipt Date: 20060307
  Transmission Date: 20060701
  Serious: Yes (Life-Threatening)
  Sender: FDA-Public Use
  Company Number: JP-BRISTOL-MYERS SQUIBB COMPANY-13309869

PATIENT
  Age: 51 Year
  Sex: Male

DRUGS (4)
  1. VP-16 [Suspect]
     Indication: LYMPHOMA
     Route: 042
  2. NIMUSTINE HCL [Suspect]
     Indication: LYMPHOMA
     Route: 042
  3. CYTARABINE [Suspect]
     Indication: LYMPHOMA
     Route: 042
  4. THIOTEPA [Suspect]
     Indication: LYMPHOMA
     Route: 042

REACTIONS (2)
  - MYELODYSPLASTIC SYNDROME [None]
  - TREATMENT RELATED SECONDARY MALIGNANCY [None]
